FAERS Safety Report 8914866 (Version 1)
Quarter: 2012Q4

REPORT INFORMATION
  Report Type: Report from Study
  Country: BE (occurrence: BE)
  Receive Date: 20121119
  Receipt Date: 20121119
  Transmission Date: 20130627
  Serious: Yes (Hospitalization)
  Sender: FDA-Public Use
  Company Number: BE-ROCHE-779383

PATIENT
  Age: 56 Year
  Sex: Female
  Weight: 51 kg

DRUGS (6)
  1. PEG-INTERFERON ALFA 2A [Suspect]
     Indication: CHRONIC HEPATITIS
     Route: 058
  2. RIBAVIRIN [Suspect]
     Indication: CHRONIC HEPATITIS
     Route: 048
     Dates: start: 20101003
  3. ALGOSTASE [Concomitant]
     Indication: DRY EYE
     Route: 047
  4. LORMETAZEPAM [Concomitant]
     Indication: NERVOUSNESS
     Route: 048
  5. BROMAZEPAM [Concomitant]
     Indication: ANXIETY
     Route: 048
  6. DUOVENT [Concomitant]
     Indication: ASTHMA
     Dosage: 2 puffs
     Route: 050

REACTIONS (1)
  - Stomatitis [Not Recovered/Not Resolved]
